FAERS Safety Report 6160609-4 (Version None)
Quarter: 2009Q2

REPORT INFORMATION
  Report Type: 
  Country: None (occurrence: None)
  Receive Date: 20090420
  Receipt Date: 20090416
  Transmission Date: 20091009
  Serious: Yes (Hospitalization)
  Sender: FDA-Public Use
  Company Number: US-BRISTOL-MYERS SQUIBB COMPANY-14029169

PATIENT
  Age: 52 Year
  Sex: Female

DRUGS (6)
  1. IXABEPILONE [Suspect]
     Indication: PANCREATIC CARCINOMA METASTATIC
     Route: 042
     Dates: start: 20071227, end: 20071227
  2. ERBITUX [Suspect]
     Indication: PANCREATIC CARCINOMA METASTATIC
     Route: 042
     Dates: start: 20071227, end: 20071227
  3. PREMARIN [Concomitant]
  4. PRILOSEC [Concomitant]
  5. OXYCODONE HCL [Concomitant]
  6. DURAGESIC-100 [Concomitant]

REACTIONS (4)
  - HYPOMAGNESAEMIA [None]
  - HYPOTENSION [None]
  - NAUSEA [None]
  - VOMITING [None]
